FAERS Safety Report 5822462-5 (Version None)
Quarter: 2008Q3

REPORT INFORMATION
  Report Type: 
  Country: None (occurrence: None)
  Receive Date: 20080725
  Receipt Date: 20080219
  Transmission Date: 20090109
  Serious: No
  Sender: FDA-Public Use
  Company Number: US-AMGEN-KDL266533

PATIENT
  Sex: Female

DRUGS (4)
  1. PROCRIT [Suspect]
     Indication: ANAEMIA OF MALIGNANT DISEASE
     Dates: start: 20070701
  2. TAXOL [Concomitant]
     Dates: start: 20080101
  3. TAXOTERE [Concomitant]
     Dates: start: 20080101
  4. METFORMIN HCL [Concomitant]

REACTIONS (3)
  - NAUSEA [None]
  - PAIN [None]
  - WEIGHT DECREASED [None]
